FAERS Safety Report 8238458-2 (Version None)
Quarter: 2012Q1

REPORT INFORMATION
  Report Type: 
  Country: None (occurrence: None)
  Receive Date: 20120327
  Receipt Date: 20120322
  Transmission Date: 20120608
  Serious: No
  Sender: FDA-Public Use
  Company Number: US-TEVA-330157USA

PATIENT
  Sex: Female
  Weight: 58.112 kg

DRUGS (2)
  1. PLAN B ONE-STEP [Suspect]
     Indication: POST COITAL CONTRACEPTION
     Dosage: 1.5 MILLIGRAM;
     Route: 048
     Dates: start: 20111208, end: 20111208
  2. EQUATE BRAND SLEEPING PILLS [Suspect]
     Indication: INSOMNIA
     Dates: start: 20111208, end: 20111208

REACTIONS (3)
  - DRUG INEFFECTIVE [None]
  - STRESS [None]
  - PREGNANCY AFTER POST COITAL CONTRACEPTION [None]
